FAERS Safety Report 9718934 (Version 1)
Quarter: 2013Q4

REPORT INFORMATION
  Report Type: Spontaneous
  Country: NL (occurrence: None)
  Receive Date: 20131126
  Receipt Date: 20131126
  Transmission Date: 20140711
  Serious: Yes (Other)
  Sender: FDA-Public Use
  Company Number: 2013AP009896

PATIENT
  Sex: Female

DRUGS (6)
  1. ALENDRONIC ACID (ALENDRONIC ACID) [Suspect]
     Indication: OSTEOPOROSIS
  2. OMEPRAZOLE (OMEPRAZOLE) [Suspect]
  3. CALCIUN D3  /00944201/ (LEKOVIT CA( [Concomitant]
  4. ASPIRIN (ACETYLSALICYLIC ACID) [Concomitant]
  5. EZETIMIBE (EZETIMIBE) (TABLET) [Concomitant]
  6. PRAVASTATIN (PRAVASTATIN) [Concomitant]

REACTIONS (5)
  - Vision blurred [None]
  - Joint swelling [None]
  - Rash [None]
  - Facial pain [None]
  - Tooth injury [None]
